FAERS Safety Report 8571954-7 (Version None)
Quarter: 2012Q3

REPORT INFORMATION
  Report Type: 
  Country: None (occurrence: None)
  Receive Date: 20120806
  Receipt Date: 20120703
  Transmission Date: 20120928
  Serious: Yes (Hospitalization)
  Sender: FDA-Public Use
  Company Number: US-009507513-2009SP016940

PATIENT

DRUGS (4)
  1. NUVARING [Suspect]
     Indication: CONTRACEPTION
     Dosage: 1 DF, QM
     Route: 067
     Dates: start: 20041201, end: 20050501
  2. WELLBUTRIN XL [Concomitant]
     Dosage: UNK
     Route: 048
  3. WELLBUTRIN XL [Concomitant]
     Indication: DEPRESSION
     Dosage: 175 MG, QD
     Route: 048
     Dates: start: 20010101
  4. WELLBUTRIN XL [Concomitant]
     Dosage: 300 MG, QD
     Route: 048
     Dates: end: 20050301

REACTIONS (10)
  - VULVOVAGINAL MYCOTIC INFECTION [None]
  - MIGRAINE [None]
  - STRESS URINARY INCONTINENCE [None]
  - IRRITABLE BOWEL SYNDROME [None]
  - WEIGHT INCREASED [None]
  - ARTERIOVENOUS FISTULA [None]
  - SKIN PAPILLOMA [None]
  - VIRAL UPPER RESPIRATORY TRACT INFECTION [None]
  - LACTOSE INTOLERANCE [None]
  - TRANSVERSE SINUS THROMBOSIS [None]
